FAERS Safety Report 18420509 (Version 2)
Quarter: 2021Q1

REPORT INFORMATION
  Report Type: Spontaneous
  Country: US (occurrence: US)
  Receive Date: 20201023
  Receipt Date: 20210105
  Transmission Date: 20210419
  Serious: No
  Sender: FDA-Public Use
  Company Number: NVSC2020US283889

PATIENT
  Sex: Male

DRUGS (5)
  1. MEKINIST [Suspect]
     Active Substance: TRAMETINIB DIMETHYL SULFOXIDE
     Indication: LUNG NEOPLASM MALIGNANT
  2. TAFINLAR [Suspect]
     Active Substance: DABRAFENIB MESYLATE
     Dosage: 150 MG, Q12H
     Route: 048
     Dates: start: 20200825
  3. TAFINLAR [Suspect]
     Active Substance: DABRAFENIB MESYLATE
     Indication: LUNG NEOPLASM MALIGNANT
     Dosage: UNK (LOWERED DOSE)
     Route: 065
  4. MEKINIST [Suspect]
     Active Substance: TRAMETINIB DIMETHYL SULFOXIDE
     Indication: UROGENITAL DISORDER
     Dosage: 2 MG, QD
     Route: 048
     Dates: start: 20200808
  5. TAFINLAR [Suspect]
     Active Substance: DABRAFENIB MESYLATE
     Indication: UROGENITAL DISORDER
     Dosage: 75 MG, Q12H
     Route: 065
     Dates: start: 202008

REACTIONS (2)
  - Fungal skin infection [Unknown]
  - Rash [Unknown]
